FAERS Safety Report 5850377-5 (Version None)
Quarter: 2008Q3

REPORT INFORMATION
  Report Type: 
  Country: None (occurrence: None)
  Receive Date: 20080819
  Receipt Date: 20080812
  Transmission Date: 20090109
  Serious: Yes (Other)
  Sender: FDA-Public Use
  Company Number: DE-GILEAD-E2B_00000186

PATIENT
  Age: 50 Year
  Sex: Male

DRUGS (6)
  1. AMBRISENTAN [Suspect]
     Indication: PULMONARY ARTERIAL HYPERTENSION
     Dosage: 5MG PER DAY
     Route: 048
     Dates: start: 20080101, end: 20080101
  2. MARCUMAR [Concomitant]
     Indication: PULMONARY ARTERIAL HYPERTENSION
     Route: 048
  3. DIURETIC [Concomitant]
     Indication: PULMONARY ARTERIAL HYPERTENSION
     Route: 065
  4. ILOPROST [Concomitant]
     Route: 042
  5. REVATIO [Concomitant]
     Route: 048
  6. TRACLEER [Concomitant]
     Indication: PULMONARY ARTERIAL HYPERTENSION
     Route: 048
     Dates: end: 20080101

REACTIONS (3)
  - ANGIOEDEMA [None]
  - FLUID RETENTION [None]
  - WEIGHT INCREASED [None]
